FAERS Safety Report 16833121 (Version 6)
Quarter: 2020Q2

REPORT INFORMATION
  Report Type: Report from Study
  Country: DE (occurrence: DE)
  Receive Date: 20190920
  Receipt Date: 20200608
  Transmission Date: 20200713
  Serious: Yes (Hospitalization)
  Sender: FDA-Public Use
  Company Number: DE-MYLANLABS-2019M1087469

PATIENT
  Age: 41 Year
  Sex: Female
  Weight: 116 kg

DRUGS (12)
  1. ARIPIPRAZOLE. [Suspect]
     Active Substance: ARIPIPRAZOLE
     Indication: PRODUCT USED FOR UNKNOWN INDICATION
     Dosage: 15 MILLIGRAM, QD, 1-0-0
     Route: 065
     Dates: start: 20190514
  2. OCREVUS [Suspect]
     Active Substance: OCRELIZUMAB
     Indication: RELAPSING-REMITTING MULTIPLE SCLEROSIS
     Dosage: SECOND INFUSION RECEIVED ON ON 24/JUL/2018
     Route: 042
     Dates: start: 20180712
  3. SODIUM PROPIONATE [Suspect]
     Active Substance: SODIUM PROPIONATE
     Indication: PRODUCT USED FOR UNKNOWN INDICATION
     Dosage: 1000 MILLIGRAM, QD
     Route: 065
     Dates: start: 20190610
  4. ARIPIPRAZOLE. [Suspect]
     Active Substance: ARIPIPRAZOLE
     Dosage: 15 MILLIGRAM, QD, 1-0-0
     Route: 065
     Dates: start: 20190514
  5. SINUPRET                           /07526101/ [Suspect]
     Active Substance: DIETARY SUPPLEMENT\HERBALS
     Indication: NASAL CRUSTING
     Dosage: UNK
     Route: 048
  6. NATALIZUMAB [Concomitant]
     Active Substance: NATALIZUMAB
     Dosage: UNK
  7. ARIPIPRAZOLE. [Suspect]
     Active Substance: ARIPIPRAZOLE
     Dosage: 10 MILLIGRAM, QD, 1-0-0
     Route: 065
  8. ARIPIPRAZOLE. [Suspect]
     Active Substance: ARIPIPRAZOLE
     Dosage: 20 MILLIGRAM, QD, 1-0-0
     Route: 065
  9. ARIPIPRAZOLE. [Suspect]
     Active Substance: ARIPIPRAZOLE
     Dosage: 15 MILLIGRAM, QD, 1-0-0
     Route: 065
  10. OCREVUS [Suspect]
     Active Substance: OCRELIZUMAB
     Dosage: SECOND INFUSION RECEIVED ON ON 24/JUL/2018,27/AUG/2019
     Route: 042
     Dates: start: 20190205
  11. OCREVUS [Suspect]
     Active Substance: OCRELIZUMAB
     Dosage: 4TH INFUSION
     Route: 042
     Dates: start: 202003
  12. SODIUM PROPIONATE [Suspect]
     Active Substance: SODIUM PROPIONATE
     Dosage: 500 MILLIGRAM, 0.5 DAY
     Route: 065
     Dates: start: 20190610

REACTIONS (36)
  - Paraesthesia [Recovered/Resolved]
  - Vertigo positional [Recovered/Resolved]
  - Multiple sclerosis relapse [Recovered/Resolved]
  - Body temperature increased [Recovered/Resolved]
  - Memory impairment [Not Recovered/Not Resolved]
  - Lymphadenopathy [Recovered/Resolved]
  - Headache [Recovered/Resolved]
  - Pain [Recovering/Resolving]
  - Autoinflammatory disease [Recovered/Resolved]
  - Influenza [Recovered/Resolved]
  - Hypoaesthesia [Recovered/Resolved]
  - Mood swings [Recovered/Resolved]
  - Panic attack [Recovered/Resolved]
  - Fatigue [Recovered/Resolved]
  - Acne [Not Recovered/Not Resolved]
  - Nasopharyngitis [Recovered/Resolved]
  - Erythema [Recovered/Resolved]
  - Product use issue [Unknown]
  - Diarrhoea [Recovered/Resolved]
  - Urine analysis abnormal [Recovered/Resolved]
  - Listless [Recovered/Resolved]
  - Pain in extremity [Recovered/Resolved]
  - Joint dislocation [Recovered/Resolved]
  - Drug level increased [Recovered/Resolved]
  - Muscle tightness [Recovered/Resolved]
  - Malaise [Recovered/Resolved]
  - Pruritus [Recovered/Resolved]
  - Vitamin D decreased [Recovered/Resolved]
  - Dyspnoea [Recovered/Resolved]
  - Skin disorder [Recovering/Resolving]
  - Weight increased [Recovered/Resolved]
  - Angular cheilitis [Recovered/Resolved]
  - Nasal dryness [Not Recovered/Not Resolved]
  - Heart rate increased [Recovered/Resolved]
  - Intervertebral disc protrusion [Not Recovered/Not Resolved]
  - Inappropriate schedule of product administration [Unknown]

NARRATIVE: CASE EVENT DATE: 20180712
